FAERS Safety Report 24074305 (Version 1)
Quarter: 2024Q3

REPORT INFORMATION
  Report Type: Report from Study
  Country: IT (occurrence: IT)
  Receive Date: 20240710
  Receipt Date: 20240710
  Transmission Date: 20241017
  Serious: Yes (Other)
  Sender: PFIZER
  Company Number: None

PATIENT
  Age: 59 Year
  Sex: Female
  Weight: 54 kg

DRUGS (7)
  1. TUKYSA [Suspect]
     Active Substance: TUCATINIB
     Indication: Breast cancer
     Dosage: 300 MG, 2X/DAY
     Route: 048
  2. TRAZIMERA [Suspect]
     Active Substance: TRASTUZUMAB-QYYP
     Indication: Breast cancer
     Dosage: 432 MG, EVERY 3 WEEKS (EVERY 21 DAYS)
     Route: 042
  3. CAPECITABINE [Suspect]
     Active Substance: CAPECITABINE
     Indication: Breast cancer
     Dosage: 1500 MG/BID X 14 DAYS (3000 MG/DAY) + 7 DAYS PAUSE, 21-DAY CYCLE
     Route: 048
     Dates: start: 20240103
  4. BISOPROLOL [Concomitant]
     Active Substance: BISOPROLOL\BISOPROLOL FUMARATE
     Dosage: 1.25 MG, 1X/DAY
     Route: 048
  5. ZOLEDRONIC ACID [Concomitant]
     Active Substance: ZOLEDRONIC ACID
     Indication: Prophylaxis
     Dosage: 4 MG EVERY 3 MONTHS
     Route: 042
  6. ESOMEPRAZOLE [Concomitant]
     Active Substance: ESOMEPRAZOLE
     Dosage: 20 MG, 1X/DAY
     Route: 048
  7. CODEX [SACCHAROMYCES BOULARDII] [Concomitant]
     Indication: Dysbiosis
     Dosage: UNK

REACTIONS (1)
  - Hepatotoxicity [Recovered/Resolved]

NARRATIVE: CASE EVENT DATE: 20240112
